FAERS Safety Report 5474312-7 (Version None)
Quarter: 2007Q4

REPORT INFORMATION
  Report Type: 
  Country: None (occurrence: None)
  Receive Date: 20071002
  Receipt Date: 20070717
  Transmission Date: 20080405
  Serious: No
  Sender: FDA-Public Use
  Company Number: US-ASTRAZENECA-2007UW16935

PATIENT
  Age: 69 Year
  Sex: Female
  Weight: 74.4 kg

DRUGS (15)
  1. ARIMIDEX [Suspect]
     Indication: BREAST CANCER
     Route: 048
  2. BENECAR [Concomitant]
  3. COREG [Concomitant]
  4. KLOR-CON [Concomitant]
  5. FOLIC ACID [Concomitant]
  6. NEXIUM [Concomitant]
     Route: 048
  7. ZOLOFT [Concomitant]
  8. PREDNISONE [Concomitant]
  9. CYCLOBENZAPRINE HCL [Concomitant]
  10. DARVOCET [Concomitant]
  11. RELAFEN [Concomitant]
  12. TIGAN [Concomitant]
  13. OSCAL [Concomitant]
  14. ASCORBIC ACID [Concomitant]
  15. BONIVA [Concomitant]

REACTIONS (8)
  - ERYTHEMA [None]
  - GROIN PAIN [None]
  - LOCAL SWELLING [None]
  - MUSCULOSKELETAL PAIN [None]
  - MUSCULOSKELETAL STIFFNESS [None]
  - NECK PAIN [None]
  - OEDEMA PERIPHERAL [None]
  - PAIN IN EXTREMITY [None]
